FAERS Safety Report 6915469-8 (Version None)
Quarter: 2010Q3

REPORT INFORMATION
  Report Type: 
  Country: None (occurrence: None)
  Receive Date: 20100809
  Receipt Date: 20100617
  Transmission Date: 20110219
  Serious: No
  Sender: FDA-Public Use
  Company Number: US-ABBOTT-10P-163-0653138-00

PATIENT
  Age: 30 Year
  Sex: Male

DRUGS (3)
  1. DEPAKOTE ER [Suspect]
     Indication: MANIA
     Dosage: 2500 MG
     Dates: start: 20100501, end: 20100501
  2. DEPAKOTE ER [Suspect]
     Dosage: 2000 MG
     Dates: start: 20100501, end: 20100601
  3. DEPAKOTE ER [Suspect]
     Dosage: 1000 MG
     Dates: start: 20100601

REACTIONS (1)
  - ANTIPSYCHOTIC DRUG LEVEL ABOVE THERAPEUTIC [None]
